FAERS Safety Report 7968350-X (Version None)
Quarter: 2011Q4

REPORT INFORMATION
  Report Type: 
  Country: None (occurrence: None)
  Receive Date: 20111209
  Receipt Date: 20111201
  Transmission Date: 20120403
  Serious: Yes (Other)
  Sender: FDA-Public Use
  Company Number: BR-BAYER-2011-115673

PATIENT
  Age: 22 Year
  Sex: Female

DRUGS (2)
  1. DIANE [Suspect]
     Indication: CONTRACEPTION
     Route: 048
  2. ESTRADIOL VALERATE/DIENOGEST [Suspect]
     Indication: CONTRACEPTION
     Dosage: UNK
     Route: 048
     Dates: start: 20111029, end: 20111130

REACTIONS (4)
  - BREAST PAIN [None]
  - URTICARIA [None]
  - WEIGHT INCREASED [None]
  - HYPERSENSITIVITY [None]
